FAERS Safety Report 7065197-6 (Version None)
Quarter: 2010Q4

REPORT INFORMATION
  Report Type: 
  Country: None (occurrence: None)
  Receive Date: 20101022
  Receipt Date: 20101022
  Transmission Date: 20110411
  Serious: No
  Sender: FDA-Public Use
  Company Number: None

PATIENT
  Sex: Female
  Weight: 76.6579 kg

DRUGS (1)
  1. SUDAFED OTC [Suspect]
     Indication: SINUS CONGESTION

REACTIONS (2)
  - MYALGIA [None]
  - PAIN IN EXTREMITY [None]
